FAERS Safety Report 5378500-X (Version None)
Quarter: 2007Q3

REPORT INFORMATION
  Report Type: 
  Country: None (occurrence: None)
  Receive Date: 20070702
  Receipt Date: 20070621
  Transmission Date: 20080115
  Serious: Yes (Hospitalization)
  Sender: FDA-Public Use
  Company Number: CERZ-11770

PATIENT
  Age: 8 Year
  Sex: Female
  Weight: 12 kg

DRUGS (13)
  1. CEREZYME [Suspect]
     Indication: GAUCHER'S DISEASE
     Dosage: 600 UNITS QWK; IV
     Route: 042
     Dates: start: 19990118
  2. VALPROATE SODIUM [Concomitant]
  3. CLONAZEPAM [Concomitant]
  4. FAMOTIDINE [Concomitant]
  5. DOMPERIDONE [Concomitant]
  6. DIAZEPAM [Concomitant]
  7. DANTROLENE SODIUM [Concomitant]
  8. ZONISAMIDE [Concomitant]
  9. FUROSEMIDE [Concomitant]
  10. SPIRONOLACTONE [Concomitant]
  11. ANTIBIOTICS - RESISTANT LACTIC ACID BACTERIAE [Concomitant]
  12. ASCORBIC ACID - CALCIUM PANTOTHENATE [Concomitant]
  13. ALFACALCIDOL [Concomitant]

REACTIONS (9)
  - BLOOD ALKALINE PHOSPHATASE INCREASED [None]
  - DEVICE RELATED INFECTION [None]
  - ENTEROCOLITIS [None]
  - HEAT STROKE [None]
  - HEPATOCELLULAR DAMAGE [None]
  - MUSCLE INJURY [None]
  - PNEUMONIA [None]
  - UPPER RESPIRATORY TRACT INFLAMMATION [None]
  - URINARY TRACT INFECTION [None]
